FAERS Safety Report 14139180 (Version 1)
Quarter: 2017Q4

REPORT INFORMATION
  Report Type: Spontaneous
  Country: US (occurrence: US)
  Receive Date: 20171028
  Receipt Date: 20171028
  Transmission Date: 20180321
  Serious: No
  Sender: FDA-Public Use
  Company Number: US-GLENMARK PHARMACEUTICALS-2017GMK028784

PATIENT

DRUGS (2)
  1. NORETHINDRONE ACETATE AND ETHINYL ESTRADIOL TABLETS USP, 1MG/0.02 MG [Suspect]
     Active Substance: ETHINYL ESTRADIOL\NORETHINDRONE ACETATE
     Indication: CONTRACEPTION
     Dosage: 1 DF, OD
     Route: 048
     Dates: start: 20170831, end: 20170904
  2. NORETHINDRONE ACETATE AND ETHINYL ESTRADIOL TABLETS USP, 1MG/0.02 MG [Suspect]
     Active Substance: ETHINYL ESTRADIOL\NORETHINDRONE ACETATE
     Indication: DYSMENORRHOEA

REACTIONS (4)
  - Product use in unapproved indication [Unknown]
  - Anxiety [Recovered/Resolved]
  - Mood altered [Recovered/Resolved]
  - Nausea [Recovered/Resolved]

NARRATIVE: CASE EVENT DATE: 20170901
